FAERS Safety Report 7968110-X (Version None)
Quarter: 2011Q4

REPORT INFORMATION
  Report Type: 
  Country: None (occurrence: None)
  Receive Date: 20111209
  Receipt Date: 20111207
  Transmission Date: 20120403
  Serious: Yes (Death, Life-Threatening)
  Sender: FDA-Public Use
  Company Number: FR-PFIZER INC-2011298896

PATIENT
  Age: 36 Year
  Sex: Male

DRUGS (17)
  1. METOCLOPRAMIDE [Suspect]
     Dosage: 3 UNIT
     Route: 042
     Dates: start: 20110305, end: 20110306
  2. GENTAMICIN SULFATE [Suspect]
     Dosage: 300 MG, UNK
     Route: 048
     Dates: start: 20110302, end: 20110306
  3. CYCLOPHOSPHAMIDE [Suspect]
     Dosage: 3200 MG, UNK
     Route: 042
     Dates: start: 20110301, end: 20110304
  4. FONDAPARINUX SODIUM [Suspect]
  5. CARBOPLATIN [Suspect]
     Dosage: 899 MG, UNK
     Route: 042
     Dates: start: 20110301, end: 20110304
  6. MORPHINE [Suspect]
     Dosage: UNK
     Route: 042
     Dates: start: 20110305, end: 20110306
  7. AMIFOSTINE [Suspect]
     Dosage: 2 UNIT
     Route: 042
     Dates: start: 20110301, end: 20110304
  8. MESNA [Suspect]
     Dosage: 800 MG, UNK
     Dates: start: 20110301, end: 20110304
  9. PREDNISOLONE [Concomitant]
  10. LEVETIRACETAM [Concomitant]
  11. ETOPOSIDE [Suspect]
     Dosage: 900 MG, UNK
     Route: 042
     Dates: start: 20110301, end: 20110304
  12. ACYCLOVIR [Suspect]
     Dosage: 750 MG, UNK
     Route: 042
     Dates: start: 20110305, end: 20110306
  13. AMIKACIN [Suspect]
     Dosage: 1300 MG, UNK
     Route: 042
     Dates: start: 20110304, end: 20110305
  14. CLONAZEPAM [Concomitant]
  15. PIPERACILLIN AND TAZOBACTAM [Suspect]
     Dosage: 12 G, UNK
     Route: 042
     Dates: start: 20110304, end: 20110306
  16. ESOMEPRAZOLE [Concomitant]
  17. PREGABALIN [Concomitant]

REACTIONS (9)
  - HYPOTENSION [None]
  - ANURIA [None]
  - MYOPERICARDITIS [None]
  - CARDIAC ARREST [None]
  - SEPSIS [None]
  - DIASTOLIC DYSFUNCTION [None]
  - SYSTOLIC DYSFUNCTION [None]
  - CARDIAC TAMPONADE [None]
  - TACHYCARDIA [None]
